APPROVED DRUG PRODUCT: METOCLOPRAMIDE HYDROCHLORIDE
Active Ingredient: METOCLOPRAMIDE HYDROCHLORIDE
Strength: EQ 5MG BASE/5ML
Dosage Form/Route: SOLUTION;ORAL
Application: A074703 | Product #001
Applicant: PHARMOBEDIENT CONSULTING
Approved: Oct 31, 1997 | RLD: No | RS: No | Type: DISCN